FAERS Safety Report 10032716 (Version 1)
Quarter: 2014Q1

REPORT INFORMATION
  Report Type: Spontaneous
  Country: US (occurrence: US)
  Receive Date: 20140324
  Receipt Date: 20140324
  Transmission Date: 20141002
  Serious: Yes (Hospitalization)
  Sender: FDA-Public Use
  Company Number: US-B.I. PHARMACEUTICALS,INC./RIDGEFIELD-2014-BI-12248BP

PATIENT
  Sex: Female
  Weight: 56 kg

DRUGS (2)
  1. SPIRIVA [Suspect]
     Indication: BRONCHITIS CHRONIC
     Route: 055
     Dates: start: 200701
  2. APRAZOLAM [Concomitant]
     Indication: ANXIETY
     Dosage: 0.125 MG
     Route: 048
     Dates: start: 2013

REACTIONS (5)
  - Pneumonia [Recovered/Resolved]
  - Vertigo CNS origin [Not Recovered/Not Resolved]
  - Wheezing [Not Recovered/Not Resolved]
  - Tongue dry [Not Recovered/Not Resolved]
  - Urine flow decreased [Not Recovered/Not Resolved]
